FAERS Safety Report 17057797 (Version 1)
Quarter: 2019Q4

REPORT INFORMATION
  Report Type: Report from Study
  Country: JP (occurrence: JP)
  Receive Date: 20191121
  Receipt Date: 20191121
  Transmission Date: 20200122
  Serious: Yes (Hospitalization, Other)
  Sender: FDA-Public Use
  Company Number: PHJP2017JP032694

PATIENT
  Age: 6 Year
  Sex: Male
  Weight: 15.4 kg

DRUGS (22)
  1. CYCLOPHOSPHAMID [Concomitant]
     Active Substance: CYCLOPHOSPHAMIDE
     Dosage: UNK
     Route: 065
     Dates: start: 20171007, end: 20171007
  2. LOCOID [Concomitant]
     Active Substance: HYDROCORTISONE BUTYRATE
     Indication: ECZEMA
     Dosage: APPROPRIATE DOSE, PRN
     Route: 061
     Dates: start: 20170705
  3. TEICOPLANIN [Concomitant]
     Active Substance: TEICOPLANIN
     Indication: INFECTION PROPHYLAXIS
     Dosage: 160 MG, QD
     Route: 041
     Dates: start: 20171102
  4. TEICOPLANIN [Concomitant]
     Active Substance: TEICOPLANIN
     Dosage: 130 MG, QD
     Route: 041
     Dates: start: 20171108, end: 20171111
  5. CLOFER [Concomitant]
     Indication: ACUTE LYMPHOCYTIC LEUKAEMIA
     Dosage: UNK
     Route: 065
     Dates: start: 20171002, end: 20171005
  6. ETOPOSIDE. [Concomitant]
     Active Substance: ETOPOSIDE
     Indication: ACUTE LYMPHOCYTIC LEUKAEMIA
     Dosage: UNK
     Route: 065
     Dates: start: 20171002, end: 20171005
  7. POSTERISAN [Concomitant]
     Active Substance: LIDOCAINE
     Indication: HAEMORRHOIDS
     Dosage: APPROPRIATE DOSE, PRN
     Route: 061
     Dates: start: 20170908
  8. MEROPENEM. [Concomitant]
     Active Substance: MEROPENEM
     Indication: INFECTION PROPHYLAXIS
     Dosage: 0.5 G, TID
     Route: 042
     Dates: start: 20171028
  9. FUNGUARD [Concomitant]
     Active Substance: MICAFUNGIN SODIUM
     Indication: INFECTION PROPHYLAXIS
     Dosage: 50 MG, QD
     Route: 041
     Dates: start: 20171006
  10. FIBRINOGEN [Concomitant]
     Active Substance: FIBRINOGEN HUMAN
     Indication: BLOOD FIBRINOGEN DECREASED
     Dosage: UNK
     Route: 065
     Dates: start: 20171105, end: 20171112
  11. KYMRIAH [Suspect]
     Active Substance: TISAGENLECLEUCEL
     Indication: ACUTE LYMPHOCYTIC LEUKAEMIA
     Dosage: 0.1X10^9 TOTAL VIABLE CELLS PER DOSE, UNK
     Route: 042
     Dates: start: 20171023, end: 20171023
  12. FLUDARABINE PHOSPHATE. [Concomitant]
     Active Substance: FLUDARABINE PHOSPHATE
     Indication: ACUTE LYMPHOCYTIC LEUKAEMIA
     Dosage: 19 MG, UNK
     Route: 065
     Dates: start: 20170925, end: 20170928
  13. HIRUDOID [Concomitant]
     Active Substance: GLYCOSAMINOGLYCANS
     Indication: ECZEMA
     Dosage: APPROPRIATE DOSE, PRN
     Route: 061
     Dates: start: 20170708
  14. NORADRENALINE [Concomitant]
     Active Substance: NOREPINEPHRINE
     Indication: BLOOD PRESSURE DECREASED
     Dosage: 0.1 GAMMA, UNK
     Route: 065
     Dates: start: 20171103, end: 20171104
  15. CYCLOPHOSPHAMID [Concomitant]
     Active Substance: CYCLOPHOSPHAMIDE
     Indication: ACUTE LYMPHOCYTIC LEUKAEMIA
     Dosage: 315 MG, UNK
     Route: 065
     Dates: start: 20170925, end: 20170926
  16. AZUNOL [Concomitant]
     Indication: INFECTION PROPHYLAXIS
     Dosage: APPROPRIATE DOSE, PRN
     Route: 049
     Dates: start: 20170831
  17. CYCLOPHOSPHAMID [Concomitant]
     Active Substance: CYCLOPHOSPHAMIDE
     Dosage: UNK
     Route: 065
     Dates: start: 20171002, end: 20171005
  18. PROPETO [Concomitant]
     Active Substance: PETROLATUM
     Indication: ECZEMA
     Dosage: APPROPRIATE DOSE, PRN
     Route: 061
     Dates: start: 20161007
  19. VOALLA [Concomitant]
     Indication: ECZEMA
     Dosage: APPROPRIATE DOSE, PRN
     Route: 061
     Dates: start: 20160705
  20. MORPHINE HYDROCHLORIDE [Concomitant]
     Active Substance: MORPHINE HYDROCHLORIDE
     Indication: PAIN
     Dosage: 0.013 MG/KG/H, UNK
     Route: 042
     Dates: start: 20171102, end: 20171103
  21. HEPARINOID [Concomitant]
     Active Substance: CHONDROITIN SULFATE (BOVINE)
     Indication: ECZEMA
     Dosage: APPROPRIATE DOSE, PRN
     Route: 061
     Dates: start: 20161007
  22. TEICOPLANIN [Concomitant]
     Active Substance: TEICOPLANIN
     Dosage: 100 MG, QD
     Route: 041
     Dates: start: 20171112

REACTIONS (1)
  - Cytokine release syndrome [Recovered/Resolved]

NARRATIVE: CASE EVENT DATE: 20171026
